FAERS Safety Report 17115683 (Version 4)
Quarter: 2020Q1

REPORT INFORMATION
  Report Type: Spontaneous
  Country: US (occurrence: US)
  Receive Date: 20191205
  Receipt Date: 20200121
  Transmission Date: 20200409
  Serious: No
  Sender: FDA-Public Use
  Company Number: US-JNJFOC-20191137120

PATIENT
  Sex: Male
  Weight: 88.53 kg

DRUGS (2)
  1. SPRAVATO [Suspect]
     Active Substance: ESKETAMINE
     Indication: BIPOLAR DISORDER
  2. SPRAVATO [Suspect]
     Active Substance: ESKETAMINE
     Indication: DEPRESSION

REACTIONS (2)
  - Therapeutic response decreased [Not Recovered/Not Resolved]
  - Drug tolerance increased [Not Recovered/Not Resolved]

NARRATIVE: CASE EVENT DATE: 2019
